FAERS Safety Report 4691067-4 (Version None)
Quarter: 2005Q2

REPORT INFORMATION
  Report Type: 
  Country: None (occurrence: None)
  Receive Date: 20050610
  Receipt Date: 20050531
  Transmission Date: 20051028
  Serious: Yes (Other)
  Sender: FDA-Public Use
  Company Number: 2005064780

PATIENT
  Sex: Male

DRUGS (3)
  1. CARDURA [Suspect]
     Indication: ILL-DEFINED DISORDER
     Dosage: (8 MG) , ORAL
     Route: 048
  2. ISTIN (AMLODIPINE) [Suspect]
     Indication: ILL-DEFINED DISORDER
     Dosage: (10 MG ), ORAL
     Route: 048
  3. ATENOLOL [Suspect]
     Indication: ILL-DEFINED DISORDER
     Dosage: ORAL
     Route: 048

REACTIONS (3)
  - BLOOD POTASSIUM DECREASED [None]
  - BLOOD PRESSURE INCREASED [None]
  - HYPOKALAEMIA [None]
